FAERS Safety Report 17187818 (Version 6)
Quarter: 2022Q4

REPORT INFORMATION
  Report Type: Spontaneous
  Country: PK (occurrence: PK)
  Receive Date: 20191221
  Receipt Date: 20221102
  Transmission Date: 20230113
  Serious: Yes (Hospitalization, Other)
  Sender: FDA-Public Use
  Company Number: PK-PFIZER INC-2019541849

PATIENT
  Age: 35 Year
  Sex: Female
  Weight: 72 kg

DRUGS (11)
  1. ENBREL [Suspect]
     Active Substance: ETANERCEPT
     Indication: Rheumatoid arthritis
     Dosage: 50 MG, WEEKLY
     Route: 058
     Dates: start: 201912
  2. ASPIRIN [Concomitant]
     Active Substance: ASPIRIN
     Dosage: UNK
  3. TRYPTAL [Concomitant]
     Dosage: 25 MG, UNK
  4. NEXIUM [Concomitant]
     Active Substance: ESOMEPRAZOLE MAGNESIUM
     Dosage: UNK
  5. FOLIC ACID [Concomitant]
     Active Substance: FOLIC ACID
     Dosage: TAKE 2 TABLETS ON EVERY THURSDAY
  6. FOLIC ACID [Concomitant]
     Active Substance: FOLIC ACID
     Dosage: 5 MG (FOR 3 MONTHS, TAKE DAILY EXCEPT ON FRIDAY)
  7. METHOTREXATE [Concomitant]
     Active Substance: METHOTREXATE
     Dosage: 100 MG, WEEKLY
  8. METHOTREXATE [Concomitant]
     Active Substance: METHOTREXATE
     Dosage: 10 MG (TAKE ONE TABLET ON EVERY FRIDAY)
  9. DELTACORTRIL [PREDNISOLONE ACETATE] [Concomitant]
     Dosage: 5 MG, DAILY
  10. CELBEXX [Concomitant]
     Dosage: 200 MG, 2X/DAY
  11. RISEK [OMEPRAZOLE] [Concomitant]
     Dosage: 20 MG, DAILY

REACTIONS (5)
  - Toe operation [Unknown]
  - Antiphospholipid syndrome [Unknown]
  - Joint swelling [Unknown]
  - Musculoskeletal stiffness [Unknown]
  - Cerebrovascular accident [Unknown]
